FAERS Safety Report 24530609 (Version 6)
Quarter: 2024Q4

REPORT INFORMATION
  Report Type: Spontaneous
  Country: GB (occurrence: GB)
  Receive Date: 20241021
  Receipt Date: 20241210
  Transmission Date: 20250114
  Serious: Yes (Hospitalization, Other)
  Sender: MYLAN
  Company Number: GB-MYLANLABS-2024M1094608

PATIENT
  Sex: Female

DRUGS (2)
  1. CLOZARIL [Suspect]
     Active Substance: CLOZAPINE
     Indication: Schizophrenia
     Dosage: UNK
     Route: 048
     Dates: start: 20040714
  2. CLOZARIL [Suspect]
     Active Substance: CLOZAPINE
     Dosage: UNK (APPROXIMATE DATE: 21-OCT-2024)
     Route: 065
     Dates: start: 202410

REACTIONS (4)
  - Hospitalisation [Recovered/Resolved]
  - Neuroendocrine carcinoma [Unknown]
  - Lung neoplasm malignant [Unknown]
  - Off label use [Unknown]
